FAERS Safety Report 4350727-5 (Version None)
Quarter: 2004Q2

REPORT INFORMATION
  Report Type: 
  Country: None (occurrence: None)
  Receive Date: 20040427
  Receipt Date: 20040407
  Transmission Date: 20050107
  Serious: Yes (Hospitalization)
  Sender: FDA-Public Use
  Company Number: DSA_23652_2003

PATIENT
  Age: 55 Year
  Sex: Female

DRUGS (8)
  1. TEVETEN [Suspect]
     Indication: HYPERTENSION
     Dosage: 600 MG Q DAY PO
     Route: 048
     Dates: start: 20031027, end: 20031102
  2. ELISOR [Concomitant]
  3. GINKOR FORT [Concomitant]
  4. PIASCLEDINE [Concomitant]
  5. TANAKAN [Concomitant]
  6. TANQUITAL [Concomitant]
  7. CLARYTINE [Concomitant]
  8. OROCAL [Concomitant]

REACTIONS (3)
  - BLOOD PRESSURE INCREASED [None]
  - HEADACHE [None]
  - RENAL ARTERY STENOSIS [None]
